FAERS Safety Report 9290561 (Version 1)
Quarter: 2013Q2

REPORT INFORMATION
  Report Type: Spontaneous
  Country: US (occurrence: None)
  Receive Date: 20130514
  Receipt Date: 20130514
  Transmission Date: 20140414
  Serious: Yes (Hospitalization)
  Sender: FDA-Public Use
  Company Number: None

PATIENT
  Age: 69 Year
  Sex: Male
  Weight: 87.5 kg

DRUGS (1)
  1. ASPIRIN/DIPYRIDAMOLE [Suspect]
     Indication: TRANSIENT ISCHAEMIC ATTACK
     Dosage: 1 TAB
     Route: 048
     Dates: start: 20130426, end: 20130509

REACTIONS (5)
  - Nausea [None]
  - Vomiting [None]
  - Transient ischaemic attack [None]
  - Peritonitis bacterial [None]
  - Leukocytosis [None]
